FAERS Safety Report 6774104-2 (Version None)
Quarter: 2010Q2

REPORT INFORMATION
  Report Type: 
  Country: None (occurrence: None)
  Receive Date: 20100616
  Receipt Date: 20100616
  Transmission Date: 20101027
  Serious: No
  Sender: FDA-Public Use
  Company Number: None

PATIENT
  Age: 80 Year
  Sex: Female

DRUGS (1)
  1. AMPHOTERICIN B [Suspect]
     Indication: FUNGAL INFECTION
     Dosage: 300MG DAILY IV
     Route: 042
     Dates: start: 20100529, end: 20100529

REACTIONS (5)
  - CHEST PAIN [None]
  - DYSPNOEA [None]
  - HOT FLUSH [None]
  - HYPERHIDROSIS [None]
  - INFUSION RELATED REACTION [None]
